FAERS Safety Report 15776773 (Version 1)
Quarter: 2018Q4

REPORT INFORMATION
  Report Type: Spontaneous
  Country: US (occurrence: US)
  Receive Date: 20181229
  Receipt Date: 20181229
  Transmission Date: 20190205
  Serious: Yes (Disabling)
  Sender: FDA-Public Use
  Company Number: None

PATIENT
  Age: 59 Year
  Sex: Female
  Weight: 56.25 kg

DRUGS (1)
  1. KENALOG-40 [Suspect]
     Active Substance: TRIAMCINOLONE ACETONIDE
     Indication: PAIN
     Dates: start: 20150915, end: 20150915

REACTIONS (13)
  - Arthralgia [None]
  - Musculoskeletal stiffness [None]
  - Drug ineffective [None]
  - Procedural pain [None]
  - Muscle atrophy [None]
  - Chronic idiopathic pain syndrome [None]
  - Impaired quality of life [None]
  - Spinal pain [None]
  - Muscle tightness [None]
  - Asthenia [None]
  - Joint range of motion decreased [None]
  - Mobility decreased [None]
  - Joint stiffness [None]

NARRATIVE: CASE EVENT DATE: 20150915
